FAERS Safety Report 18439133 (Version 5)
Quarter: 2021Q1

REPORT INFORMATION
  Report Type: Report from Study
  Country: BR (occurrence: BR)
  Receive Date: 20201028
  Receipt Date: 20210217
  Transmission Date: 20210419
  Serious: Yes (Death, Life-Threatening, Other)
  Sender: FDA-Public Use
  Company Number: BR-GILEAD-2020-0496346

PATIENT
  Age: 66 Year
  Sex: Male
  Weight: 80 kg

DRUGS (39)
  1. AZITHROMYCIN ANHYDROUS. [Concomitant]
     Active Substance: AZITHROMYCIN ANHYDROUS
     Indication: COVID-19
     Dosage: 500 MG
     Dates: start: 20200912, end: 20200917
  2. OMEPRAZOLE. [Concomitant]
     Active Substance: OMEPRAZOLE
     Dosage: 40 MG
     Dates: start: 20200914, end: 20200919
  3. LIDOCAINE. [Concomitant]
     Active Substance: LIDOCAINE
     Indication: SEDATION
     Dosage: 6 ML
     Dates: start: 20200919, end: 20200919
  4. CIMETIDINE [Concomitant]
     Active Substance: CIMETIDINE
     Dosage: 300 MG
     Dates: start: 20200919, end: 20200928
  5. OXYGEN. [Concomitant]
     Active Substance: OXYGEN
     Dosage: 9L/MIN
     Route: 007
     Dates: start: 20200917
  6. OXYGEN. [Concomitant]
     Active Substance: OXYGEN
     Dosage: 10L/MIN
     Route: 007
     Dates: start: 20200918
  7. OXYGEN. [Concomitant]
     Active Substance: OXYGEN
     Dosage: 10L/MIN
     Route: 007
     Dates: start: 20200919
  8. OXYGEN. [Concomitant]
     Active Substance: OXYGEN
     Dosage: 60%
     Route: 007
     Dates: start: 20200926
  9. OXYGEN. [Concomitant]
     Active Substance: OXYGEN
     Dosage: 60%
     Route: 007
     Dates: start: 20200928
  10. FENTANYL. [Concomitant]
     Active Substance: FENTANYL
     Indication: SEDATION
     Dosage: 20 ML
     Dates: start: 20200919, end: 20200928
  11. HEPARIN [Concomitant]
     Active Substance: HEPARIN SODIUM
     Dosage: 1250 IU
     Dates: start: 20200920, end: 20200928
  12. TOCILIZUMAB. [Suspect]
     Active Substance: TOCILIZUMAB
     Dosage: UNK
     Route: 042
  13. OXYGEN. [Concomitant]
     Active Substance: OXYGEN
     Dosage: 12L/MIN
     Route: 007
     Dates: start: 20200919
  14. OXYGEN. [Concomitant]
     Active Substance: OXYGEN
     Dosage: 60%
     Route: 007
     Dates: start: 20200919
  15. OXYGEN. [Concomitant]
     Active Substance: OXYGEN
     Dosage: 40%
     Route: 007
     Dates: start: 20200922
  16. OXYGEN. [Concomitant]
     Active Substance: OXYGEN
     Dosage: 50%
     Route: 007
     Dates: start: 20200925
  17. OXYGEN. [Concomitant]
     Active Substance: OXYGEN
     Dosage: 60%
     Route: 007
     Dates: start: 20200927
  18. TOCILIZUMAB. [Suspect]
     Active Substance: TOCILIZUMAB
     Indication: COVID-19 PNEUMONIA
     Dosage: UNK
     Route: 042
     Dates: start: 20200917
  19. CEFTRIAXONE. [Concomitant]
     Active Substance: CEFTRIAXONE
     Indication: COVID-19
     Dosage: 2 GTT DROPS
     Dates: start: 20200912, end: 20200917
  20. OSELTAMIVIR [Concomitant]
     Active Substance: OSELTAMIVIR
     Dates: start: 20200912, end: 20200912
  21. ENALAPRIL [Concomitant]
     Active Substance: ENALAPRIL
     Indication: HYPERTENSION
     Dosage: 10 MG
     Dates: start: 1995, end: 20200911
  22. BROMOPRIDE [Concomitant]
     Active Substance: BROMOPRIDE
     Dosage: 10 MG
     Dates: start: 20200912, end: 20200928
  23. ACETYLSALICYLIC ACID [Concomitant]
     Active Substance: ASPIRIN
     Indication: ISCHAEMIC STROKE
     Dosage: 100 MG
     Dates: start: 20200914, end: 20200928
  24. CODEINE [Concomitant]
     Active Substance: CODEINE
     Indication: COUGH
     Dosage: 30 MG
     Dates: start: 20200918, end: 20200918
  25. FUROSEMIDE. [Concomitant]
     Active Substance: FUROSEMIDE
     Indication: ACUTE KIDNEY INJURY
     Dosage: 40 MG
     Dates: start: 20200921, end: 20200921
  26. INSULIN HUMAN [Concomitant]
     Active Substance: INSULIN HUMAN
     Indication: HYPERGLYCAEMIA
     Dosage: 16 IU
     Dates: start: 20200926, end: 20200928
  27. OXYGEN. [Concomitant]
     Active Substance: OXYGEN
     Dosage: 40%
     Route: 007
     Dates: start: 20200924
  28. DEXAMETHASONE. [Concomitant]
     Active Substance: DEXAMETHASONE
     Indication: COVID-19 PNEUMONIA
     Dates: start: 20200912
  29. OXYGEN. [Concomitant]
     Active Substance: OXYGEN
     Dosage: 40%
     Route: 007
     Dates: start: 20200921
  30. MIDAZOLAM. [Concomitant]
     Active Substance: MIDAZOLAM
     Indication: SEDATION
     Dosage: 100 MG
     Dates: start: 20200919, end: 20200928
  31. SALBUTAMOL [Concomitant]
     Active Substance: ALBUTEROL
     Indication: ACUTE KIDNEY INJURY
     Dosage: 800 UG
     Dates: start: 20200921, end: 20200928
  32. OXYGEN. [Concomitant]
     Active Substance: OXYGEN
     Dosage: 40%
     Route: 007
     Dates: start: 20200923
  33. REMDESIVIR. [Suspect]
     Active Substance: REMDESIVIR
     Indication: COVID-19 PNEUMONIA
     Dosage: 200 MG, QD
     Route: 042
     Dates: start: 20200917
  34. ENOXAPARIN [Concomitant]
     Active Substance: ENOXAPARIN
     Dates: start: 20200912, end: 20200918
  35. DIPYRONE [Concomitant]
     Active Substance: DIPYRONE
     Indication: COVID-19
     Dosage: 1000 MG
     Dates: start: 20200912, end: 20200928
  36. ROCURONIUM [Concomitant]
     Active Substance: ROCURONIUM BROMIDE
     Indication: SEDATION
     Dosage: 200 MG
     Dates: start: 20200919, end: 20200928
  37. METHYLPREDNISOLONE. [Concomitant]
     Active Substance: METHYLPREDNISOLONE
     Indication: COVID-19
     Dosage: 40 MG
     Dates: start: 20200915, end: 20200927
  38. INSULIN [Concomitant]
     Active Substance: INSULIN NOS
     Indication: HYPERGLYCAEMIA
     Dates: start: 20200926, end: 20200928
  39. OXYGEN. [Concomitant]
     Active Substance: OXYGEN
     Dosage: 40%
     Route: 007
     Dates: start: 20200920

REACTIONS (2)
  - Septic shock [Fatal]
  - Pneumonia [Not Recovered/Not Resolved]

NARRATIVE: CASE EVENT DATE: 20200919
